FAERS Safety Report 15438648 (Version 1)
Quarter: 2018Q4

REPORT INFORMATION
  Report Type: Spontaneous
  Country: US (occurrence: US)
  Receive Date: 20180928
  Receipt Date: 20180928
  Transmission Date: 20190204
  Serious: No
  Sender: FDA-Public Use
  Company Number: US-BION-007265

PATIENT
  Age: 69 Year
  Sex: Male
  Weight: 104.33 kg

DRUGS (6)
  1. NAPROXEN. [Concomitant]
     Active Substance: NAPROXEN
     Indication: MUSCULOSKELETAL PAIN
  2. IMODIUM A-D [Suspect]
     Active Substance: LOPERAMIDE HYDROCHLORIDE
     Indication: DIARRHOEA
     Route: 048
     Dates: start: 20180610, end: 20180611
  3. FISH OIL [Concomitant]
     Active Substance: FISH OIL
     Indication: ROUTINE HEALTH MAINTENANCE
     Dosage: FOR YEARS
  4. INSULIN [Concomitant]
     Active Substance: INSULIN NOS
     Indication: DIABETES MELLITUS
     Dosage: INSULIN SHOTS FOR 48 YEARS
     Dates: start: 1970
  5. FISH OIL [Concomitant]
     Active Substance: FISH OIL
     Indication: ROUTINE HEALTH MAINTENANCE
     Dosage: FOR YEARS
  6. CHONDROITIN SULFATE/GLUCOSAMINE [Concomitant]
     Indication: MUSCULOSKELETAL PAIN
     Dosage: FOR YEARS

REACTIONS (1)
  - Drug ineffective [Not Recovered/Not Resolved]
